FAERS Safety Report 5796818-3 (Version None)
Quarter: 2008Q3

REPORT INFORMATION
  Report Type: 
  Country: None (occurrence: None)
  Receive Date: 20080701
  Receipt Date: 20080624
  Transmission Date: 20090109
  Serious: Yes (Hospitalization)
  Sender: FDA-Public Use
  Company Number: US-ASTRAZENECA-2007UW24867

PATIENT
  Age: 41 Year
  Sex: Female
  Weight: 123.6 kg

DRUGS (8)
  1. SEROQUEL [Suspect]
     Indication: SCHIZOPHRENIA
     Dosage: 100 MG; 1 BID; 4 HS
     Route: 048
     Dates: start: 19970101
  2. THORAZINE [Concomitant]
     Dates: start: 19940101, end: 20060101
  3. PROZAC [Concomitant]
  4. DEPAKOTE [Concomitant]
     Dosage: 500 MG; 1 DAY; 2 AT NIGHT
  5. VISTARIL [Concomitant]
  6. WELLBUTRIN XL [Concomitant]
  7. KLONOPIN [Concomitant]
  8. HYDROXYZINE HCL [Concomitant]

REACTIONS (7)
  - DIABETES MELLITUS [None]
  - GALLBLADDER OPERATION [None]
  - HIP ARTHROPLASTY [None]
  - HIP FRACTURE [None]
  - INTERVERTEBRAL DISC OPERATION [None]
  - KNEE ARTHROPLASTY [None]
  - MUSCULOSKELETAL DISORDER [None]
